FAERS Safety Report 24460268 (Version 1)
Quarter: 2024Q4

REPORT INFORMATION
  Report Type: Spontaneous
  Country: AE (occurrence: AE)
  Receive Date: 20241018
  Receipt Date: 20241018
  Transmission Date: 20250115
  Serious: No
  Sender: ROCHE
  Company Number: AE-ROCHE-3571267

PATIENT
  Age: 14 Year
  Sex: Female

DRUGS (1)
  1. RITUXIMAB [Suspect]
     Active Substance: RITUXIMAB
     Indication: Multiple sclerosis relapse
     Route: 065

REACTIONS (2)
  - Off label use [Unknown]
  - Inflammatory bowel disease [Unknown]
